FAERS Safety Report 8289161-4 (Version None)
Quarter: 2012Q2

REPORT INFORMATION
  Report Type: 
  Country: None (occurrence: None)
  Receive Date: 20120412
  Receipt Date: 20120402
  Transmission Date: 20120825
  Serious: Yes (Death, Hospitalization, Disabling, Other)
  Sender: FDA-Public Use
  Company Number: 2008AL010964

PATIENT
  Age: 72 Year
  Sex: Female
  Weight: 56.6996 kg

DRUGS (85)
  1. REDNISONE [Concomitant]
  2. SIMVASTATIN [Concomitant]
  3. HEPARIN [Concomitant]
  4. HYDROCORTISONE [Concomitant]
  5. CATAPRES [Concomitant]
  6. CORTICOSTEROIDS [Concomitant]
  7. POTASSIUM CHLORIDE [Concomitant]
  8. NOVOLOG [Concomitant]
  9. ZOCOR [Concomitant]
  10. FUROSEMIDE [Concomitant]
  11. AVAPRO [Concomitant]
  12. AVELOX [Concomitant]
  13. BIAXIN [Concomitant]
  14. FOSINOPRIL SODIUM [Concomitant]
  15. ZOCOR [Concomitant]
  16. CARAFATE [Concomitant]
  17. AMBIEN [Concomitant]
  18. CALCIUM CARBONATE [Concomitant]
  19. AVELIDE [Concomitant]
  20. ISOSORBIDE MONONITRATE [Concomitant]
  21. METFORMIN HCL [Concomitant]
  22. LEXAPRO [Concomitant]
  23. LIPITOR [Concomitant]
  24. ASPIRIN [Concomitant]
  25. DIFLUCAN [Concomitant]
  26. DARVOCET [Concomitant]
  27. NITROGLYCERIN [Concomitant]
  28. ZESTRIL [Concomitant]
  29. KEFLEX [Concomitant]
  30. POTASSIUM [Concomitant]
  31. CIPROFLOXACIN [Concomitant]
  32. OXYCODONE HCL [Concomitant]
  33. METRONIDAZOLE [Concomitant]
  34. LIPITOR [Concomitant]
  35. PERCOCET [Concomitant]
  36. FEOSOL [Concomitant]
  37. NORVASC [Concomitant]
  38. LASIX [Concomitant]
  39. PRILOSEC [Concomitant]
  40. PAMELOR [Concomitant]
  41. POTASSIUM CHLORIDE [Concomitant]
  42. LASIX [Concomitant]
  43. BION TEARS [Concomitant]
  44. METOPROLOL TARTRATE [Concomitant]
  45. CLINDAMYCIN [Concomitant]
  46. VANCOMYCIN [Concomitant]
  47. ALLOPURINOL [Concomitant]
  48. COREG [Concomitant]
  49. AMIODARONE HCL [Concomitant]
  50. CEPHALEXIN [Concomitant]
  51. IBUPROFEN [Concomitant]
  52. AMBIEN [Concomitant]
  53. KEFLEX [Concomitant]
  54. NOVOLOG [Concomitant]
  55. GLUCOPHAGE [Concomitant]
  56. NITROGLYCERIN [Concomitant]
  57. ZOLPIDEM [Concomitant]
  58. NITROGLYCERIN [Concomitant]
  59. CALCIUM CARBONATE [Concomitant]
  60. IBUPROFEN (ADVIL) [Concomitant]
  61. AVALIDE [Concomitant]
  62. MOBIC [Concomitant]
  63. CYMBALTA [Concomitant]
  64. FOSAMAX [Concomitant]
  65. GLUCOPHAGE [Concomitant]
  66. CARAFATE [Concomitant]
  67. ASPIRIN [Concomitant]
  68. LOPRESSOR [Concomitant]
  69. ASPIRIN [Concomitant]
  70. PERCOCET [Concomitant]
  71. FOSAMAX [Concomitant]
  72. OMEPRAZOLE [Concomitant]
  73. PREDNISONE TAB [Concomitant]
  74. ZESTRIL [Concomitant]
  75. LOPRESSOR [Concomitant]
  76. DIGOXIN [Suspect]
     Indication: PRODUCT USED FOR UNKNOWN INDICATION
     Dosage: 0.25 MG, QD, PO
     Route: 048
     Dates: start: 20000324, end: 20080802
  77. PRILOSEC [Concomitant]
  78. NORTRIPTYLINE HCL [Concomitant]
  79. LISINOPRIL [Concomitant]
  80. LORTEL [Concomitant]
  81. PREVACID [Concomitant]
  82. PERCOCET [Concomitant]
  83. PROTONIX [Concomitant]
  84. CALCIUM CARBONATE [Concomitant]
  85. VITAMIN D [Concomitant]

REACTIONS (117)
  - HEART RATE IRREGULAR [None]
  - DIARRHOEA [None]
  - CLOSTRIDIUM DIFFICILE COLITIS [None]
  - INTERMITTENT CLAUDICATION [None]
  - CATARACT [None]
  - UPPER GASTROINTESTINAL HAEMORRHAGE [None]
  - CONJUNCTIVITIS [None]
  - RESPIRATORY FUME INHALATION DISORDER [None]
  - UPPER RESPIRATORY TRACT INFECTION [None]
  - DEMENTIA [None]
  - BURSITIS [None]
  - PULMONARY HYPERTENSION [None]
  - ABDOMINAL TENDERNESS [None]
  - DEHYDRATION [None]
  - NERVE INJURY [None]
  - CHRONIC OBSTRUCTIVE PULMONARY DISEASE [None]
  - NORMOCHROMIC NORMOCYTIC ANAEMIA [None]
  - ECCHYMOSIS [None]
  - BREAST MASS [None]
  - DIASTOLIC DYSFUNCTION [None]
  - MITRAL VALVE INCOMPETENCE [None]
  - TENDONITIS [None]
  - ECONOMIC PROBLEM [None]
  - DYSPNOEA [None]
  - CONFUSIONAL STATE [None]
  - CARDIOACTIVE DRUG LEVEL ABOVE THERAPEUTIC [None]
  - VITAMIN D DEFICIENCY [None]
  - ATELECTASIS [None]
  - SINUS CONGESTION [None]
  - PALPITATIONS [None]
  - HYALOSIS ASTEROID [None]
  - INTRAOCULAR LENS IMPLANT [None]
  - OEDEMA [None]
  - MUSCULOSKELETAL STIFFNESS [None]
  - MENTAL STATUS CHANGES [None]
  - BRONCHITIS [None]
  - CAROTID ARTERY STENOSIS [None]
  - CHEST PAIN [None]
  - DIZZINESS [None]
  - ASTHENIA [None]
  - HYPOACUSIS [None]
  - DEAFNESS NEUROSENSORY [None]
  - HYPERCHOLESTEROLAEMIA [None]
  - GLUCOSE TOLERANCE IMPAIRED [None]
  - TENDON RUPTURE [None]
  - DRY EYE [None]
  - CELLULITIS [None]
  - ORAL CANDIDIASIS [None]
  - INTERVERTEBRAL DISC DEGENERATION [None]
  - EXCORIATION [None]
  - BRONCHIECTASIS [None]
  - SOCIAL AVOIDANT BEHAVIOUR [None]
  - HEART RATE INCREASED [None]
  - ENTEROCOLITIS INFECTIOUS [None]
  - HYPOTENSION [None]
  - EAR DISCOMFORT [None]
  - LACERATION [None]
  - DRUG DEPENDENCE [None]
  - GENERAL PHYSICAL HEALTH DETERIORATION [None]
  - VASCULAR OCCLUSION [None]
  - DEPRESSION [None]
  - FATIGUE [None]
  - CHILLS [None]
  - BACK PAIN [None]
  - HYPERTRIGLYCERIDAEMIA [None]
  - FLUID OVERLOAD [None]
  - ABDOMINAL PAIN [None]
  - MALNUTRITION [None]
  - EMOTIONAL DISORDER [None]
  - PAIN [None]
  - UNEVALUABLE EVENT [None]
  - ANHEDONIA [None]
  - SEPSIS [None]
  - CARDIAC FAILURE CONGESTIVE [None]
  - FALL [None]
  - TEMPORAL ARTERITIS [None]
  - OSTEOPOROSIS [None]
  - FIBROMYALGIA [None]
  - URINARY TRACT INFECTION PSEUDOMONAL [None]
  - PERIPHERAL ISCHAEMIA [None]
  - CARDIOMEGALY [None]
  - ROTATOR CUFF SYNDROME [None]
  - MYALGIA [None]
  - GASTROENTERITIS [None]
  - BREAST CALCIFICATIONS [None]
  - ATRIAL FIBRILLATION [None]
  - POLYMYALGIA RHEUMATICA [None]
  - CONTUSION [None]
  - LUNG INFILTRATION [None]
  - DIPLOPIA [None]
  - ARTHRALGIA [None]
  - OPTIC ATROPHY [None]
  - TROPONIN INCREASED [None]
  - DIABETES MELLITUS [None]
  - LOSS OF CONSCIOUSNESS [None]
  - OROPHARYNGEAL PAIN [None]
  - GASTRITIS [None]
  - TRICUSPID VALVE INCOMPETENCE [None]
  - MULTIPLE INJURIES [None]
  - HYPERHIDROSIS [None]
  - TINNITUS [None]
  - COMMUNICATION DISORDER [None]
  - HEADACHE [None]
  - VISION BLURRED [None]
  - HYPERTENSION [None]
  - LETHARGY [None]
  - PLEURAL EFFUSION [None]
  - ASCITES [None]
  - WEIGHT DECREASED [None]
  - MUSCULOSKELETAL PAIN [None]
  - SYNCOPE [None]
  - HYPOKALAEMIA [None]
  - OPEN WOUND [None]
  - BALANCE DISORDER [None]
  - APHASIA [None]
  - HIATUS HERNIA [None]
  - SINUS BRADYCARDIA [None]
